FAERS Safety Report 25066590 (Version 8)
Quarter: 2025Q4

REPORT INFORMATION
  Report Type: Spontaneous
  Country: EU (occurrence: EU)
  Receive Date: 20250312
  Receipt Date: 20251229
  Transmission Date: 20260117
  Serious: Yes (Other)
  Sender: ROCHE
  Company Number: EU-ROCHE-10000222767

PATIENT
  Age: 57 Year
  Sex: Male
  Weight: 72 kg

DRUGS (6)
  1. MABTHERA [Suspect]
     Active Substance: RITUXIMAB
     Indication: Follicular lymphoma
     Route: 058
     Dates: start: 20240624
  2. MABTHERA [Suspect]
     Active Substance: RITUXIMAB
     Route: 058
     Dates: start: 20240701
  3. MABTHERA [Suspect]
     Active Substance: RITUXIMAB
     Route: 058
     Dates: start: 20240708
  4. RUXIENCE [Suspect]
     Active Substance: RITUXIMAB-PVVR
     Indication: Follicular lymphoma
  5. PROPOFOL 1% [Concomitant]
     Active Substance: PROPOFOL
     Indication: Diarrhoea
     Route: 042
  6. PROPOFOL 1% [Concomitant]
     Active Substance: PROPOFOL
     Route: 042

REACTIONS (18)
  - Insomnia [Not Recovered/Not Resolved]
  - Cough [Not Recovered/Not Resolved]
  - Bronchitis [Not Recovered/Not Resolved]
  - Gastrointestinal disorder [Not Recovered/Not Resolved]
  - Burning sensation [Not Recovered/Not Resolved]
  - Ill-defined disorder [Not Recovered/Not Resolved]
  - Arthritis [Not Recovered/Not Resolved]
  - Muscle spasms [Recovered/Resolved]
  - Hordeolum [Unknown]
  - Immunodeficiency [Not Recovered/Not Resolved]
  - Syncope [Not Recovered/Not Resolved]
  - Renal cyst [Unknown]
  - Benign prostatic hyperplasia [Unknown]
  - Peripheral nerve injury [Not Recovered/Not Resolved]
  - Paronychia [Unknown]
  - Paraesthesia [Unknown]
  - Cellulitis [Unknown]
  - Burning sensation [Unknown]

NARRATIVE: CASE EVENT DATE: 20240708
